FAERS Safety Report 7304889-8 (Version None)
Quarter: 2011Q1

REPORT INFORMATION
  Report Type: 
  Country: None (occurrence: None)
  Receive Date: 20110222
  Receipt Date: 20110210
  Transmission Date: 20110831
  Serious: Yes (Hospitalization)
  Sender: FDA-Public Use
  Company Number: KR-ELI_LILLY_AND_COMPANY-KR201102002746

PATIENT
  Age: 58 Year
  Sex: Female

DRUGS (2)
  1. HUMALOG MIX 75/25 [Suspect]
     Dosage: 10U MORNING, 12U AFTERNOON, 10U EVENING
     Dates: start: 20101201
  2. HUMALOG MIX 75/25 [Suspect]
     Dosage: 12 U, DAILY (1/D)
     Dates: start: 20101201

REACTIONS (1)
  - NEPHROLITHIASIS [None]
